FAERS Safety Report 9215431 (Version 1)
Quarter: 2013Q2

REPORT INFORMATION
  Report Type: Report from Study
  Country: ES (occurrence: ES)
  Receive Date: 20130405
  Receipt Date: 20130405
  Transmission Date: 20140414
  Serious: Yes (Other)
  Sender: FDA-Public Use
  Company Number: ES-AMGEN-ESPCT2011019193

PATIENT
  Age: 73 Year
  Sex: Male
  Weight: 100 kg

DRUGS (9)
  1. DENOSUMAB [Suspect]
     Indication: PROSTATE CANCER
     Dosage: UNK
     Dates: start: 20080325, end: 20101228
  2. PROCRIN [Concomitant]
     Dosage: 7.5 MG, QMO
     Route: 030
     Dates: start: 200603
  3. CASODEX [Concomitant]
     Dosage: 50 MG, QD
     Route: 048
     Dates: start: 200603
  4. CALCIUM [Concomitant]
     Dosage: 500 MG, QD
     Route: 048
     Dates: start: 20080325
  5. ZYLORIC [Concomitant]
     Dosage: 300 MG, QD
     Route: 048
  6. CARDIL [Concomitant]
     Dosage: 10 MG, QD
     Route: 048
  7. VITAMIN D [Concomitant]
     Dosage: 400 IU, QD
     Dates: start: 20080325
  8. LOBIVON [Concomitant]
     Dosage: 51 MG, QD
     Route: 048
     Dates: start: 200802
  9. COAPROVEL [Concomitant]
     Dosage: UNK UNK, QD
     Route: 048
     Dates: start: 200701

REACTIONS (1)
  - Osteonecrosis of jaw [Recovered/Resolved]
